FAERS Safety Report 23882887 (Version 3)
Quarter: 2024Q3

REPORT INFORMATION
  Report Type: Report from Study
  Country: CA (occurrence: CA)
  Receive Date: 20240522
  Receipt Date: 20240701
  Transmission Date: 20241016
  Serious: Yes (Other)
  Sender: ROCHE
  Company Number: CA-ROCHE-3565333

PATIENT
  Sex: Male

DRUGS (1)
  1. VABYSMO [Suspect]
     Active Substance: FARICIMAB\FARICIMAB-SVOA
     Indication: Neovascular age-related macular degeneration
     Dosage: NO
     Route: 050
     Dates: start: 20220926, end: 20240111

REACTIONS (3)
  - Hip fracture [Unknown]
  - Spinal stenosis [Unknown]
  - Prostatic disorder [Unknown]
